FAERS Safety Report 6641801-9 (Version None)
Quarter: 2010Q1

REPORT INFORMATION
  Report Type: 
  Country: None (occurrence: None)
  Receive Date: 20100316
  Receipt Date: 20100311
  Transmission Date: 20100710
  Serious: Yes (Hospitalization)
  Sender: FDA-Public Use
  Company Number: ALL1-2010-01366

PATIENT
  Age: 39 Year
  Sex: Male
  Weight: 111.1 kg

DRUGS (5)
  1. FOSRENOL [Suspect]
     Indication: HYPERPHOSPHATAEMIA
     Dosage: 1000 MG, WITH MEALS, ORAL
     Route: 048
     Dates: start: 20091201
  2. QUINAPRIL HCL [Concomitant]
  3. LABETALOL HCL [Concomitant]
  4. BUMEX [Concomitant]
  5. INSULIN (INSULIN) [Concomitant]

REACTIONS (6)
  - BLOOD GLUCOSE DECREASED [None]
  - BLOOD GLUCOSE INCREASED [None]
  - CHOLELITHIASIS [None]
  - INFECTION [None]
  - MALAISE [None]
  - NAUSEA [None]
